FAERS Safety Report 23833131 (Version 1)
Quarter: 2024Q2

REPORT INFORMATION
  Report Type: Spontaneous
  Country: DE (occurrence: DE)
  Receive Date: 20240508
  Receipt Date: 20240508
  Transmission Date: 20240715
  Serious: Yes (Other)
  Sender: FDA-Public Use
  Company Number: DE-002147023-NVSC2021DE227561

PATIENT
  Age: 60 Year
  Sex: Female

DRUGS (6)
  1. AMITRIPTYLINE [Suspect]
     Active Substance: AMITRIPTYLINE
     Indication: Major depression
     Dosage: UNK
     Route: 065
  2. ARIPIPRAZOLE [Suspect]
     Active Substance: ARIPIPRAZOLE
     Indication: Major depression
     Dosage: UNK
     Route: 065
  3. AGOMELATINE [Suspect]
     Active Substance: AGOMELATINE
     Indication: Product used for unknown indication
     Dosage: UNK
     Route: 065
  4. OLANZAPINE [Suspect]
     Active Substance: OLANZAPINE
     Indication: Product used for unknown indication
     Dosage: UNK
     Route: 065
  5. TRANYLCYPROMINE [Suspect]
     Active Substance: TRANYLCYPROMINE
     Indication: Major depression
     Dosage: 100 MG, 1D
     Route: 065
  6. TRANYLCYPROMINE [Suspect]
     Active Substance: TRANYLCYPROMINE
     Dosage: UNK
     Route: 065

REACTIONS (3)
  - Renal impairment [Unknown]
  - Therapy non-responder [Unknown]
  - Drug ineffective [Unknown]
